FAERS Safety Report 8895463 (Version 1)
Quarter: 2012Q4

REPORT INFORMATION
  Report Type: 
  Country: GB (occurrence: GB)
  Receive Date: 20121107
  Receipt Date: 20121107
  Transmission Date: 20130627
  Serious: Yes (Disabling)
  Sender: FDA-Public Use
  Company Number: PHHY2012GB099238

PATIENT
  Age: 83 Year
  Sex: Female

DRUGS (4)
  1. ATORVASTATIN [Suspect]
     Dosage: 80 mg, QD
     Route: 048
     Dates: start: 201204, end: 201209
  2. ISOSORBIDE [Concomitant]
  3. BISOPROLOL FUMARATE [Concomitant]
  4. BENDROFLUMETHIAZIDE [Concomitant]

REACTIONS (7)
  - Hypertrophic cardiomyopathy [Not Recovered/Not Resolved]
  - Dyspnoea exertional [Unknown]
  - Dizziness [Unknown]
  - Oedema [Unknown]
  - Cardiac failure [Unknown]
  - Decreased appetite [Unknown]
  - Balance disorder [Unknown]
